FAERS Safety Report 19755419 (Version 1)
Quarter: 2021Q3

REPORT INFORMATION
  Report Type: Spontaneous
  Country: JP (occurrence: JP)
  Receive Date: 20210827
  Receipt Date: 20210827
  Transmission Date: 20211014
  Serious: Yes (Other)
  Sender: FDA-Public Use
  Company Number: JP-LEO PHARMA-338407

PATIENT
  Sex: Male

DRUGS (1)
  1. DOVOBET [Suspect]
     Active Substance: BETAMETHASONE\CALCIPOTRIENE
     Indication: PSORIASIS
     Route: 061
     Dates: start: 20210221, end: 20210226

REACTIONS (1)
  - Syphilis [Recovering/Resolving]

NARRATIVE: CASE EVENT DATE: 20210226
